FAERS Safety Report 13538750 (Version 1)
Quarter: 2017Q2

REPORT INFORMATION
  Report Type: Report from Study
  Country: None (occurrence: BR)
  Receive Date: 20170512
  Receipt Date: 20170512
  Transmission Date: 20170830
  Serious: Yes (Other)
  Sender: FDA-Public Use
  Company Number: BR-ABBVIE-14P-020-1248053-00

PATIENT
  Age: 50 Year
  Sex: Male
  Weight: 74 kg

DRUGS (4)
  1. ATACAND [Concomitant]
     Active Substance: CANDESARTAN CILEXETIL
     Indication: BLOOD PRESSURE ABNORMAL
     Route: 048
     Dates: start: 2017
  2. HUMIRA [Suspect]
     Active Substance: ADALIMUMAB
     Indication: ANKYLOSING SPONDYLITIS
     Route: 058
     Dates: start: 20130101, end: 201612
  3. DIUPRESS [Concomitant]
     Indication: BLOOD PRESSURE ABNORMAL
     Route: 048
  4. HUMIRA [Suspect]
     Active Substance: ADALIMUMAB
     Route: 058

REACTIONS (13)
  - Red blood cell abnormality [Recovering/Resolving]
  - Erythema [Recovering/Resolving]
  - Irritability [Recovered/Resolved]
  - Blood iron abnormal [Unknown]
  - Polycythaemia [Unknown]
  - Dizziness [Recovered/Resolved]
  - Disorientation [Recovered/Resolved]
  - Feeling hot [Recovering/Resolving]
  - Feeling hot [Recovered/Resolved]
  - Irritability [Recovered/Resolved]
  - Haematocrit increased [Recovering/Resolving]
  - Haematocrit abnormal [Recovered/Resolved]
  - Eye irritation [Recovered/Resolved]

NARRATIVE: CASE EVENT DATE: 20140401
